FAERS Safety Report 6398268-8 (Version None)
Quarter: 2009Q4

REPORT INFORMATION
  Report Type: 
  Country: None (occurrence: None)
  Receive Date: 20091007
  Receipt Date: 20090923
  Transmission Date: 20100525
  Serious: Yes (Death, Other)
  Sender: FDA-Public Use
  Company Number: CLOF-1000569

PATIENT
  Age: 36 Year
  Sex: Male
  Weight: 90 kg

DRUGS (7)
  1. EVOLTRA (CLOFARABINE) SOLUTION FOR INFUSION, MG/M2 [Suspect]
     Indication: ACUTE MYELOID LEUKAEMIA
     Dosage: 80 MG/DAY, QDX5, INTRAVENOUS
     Route: 042
     Dates: start: 20090508, end: 20090512
  2. CYTARABINE [Concomitant]
  3. CEFTRIAXON-BIOCHEMIE (CEFTRIAXONE SODIUM) [Concomitant]
  4. AMIKACIN SULFATE [Concomitant]
  5. TEICOPLANIN (TEICOPLANIN) [Concomitant]
  6. FILGRASTIM (FILGRASTIM) [Concomitant]
  7. FLUCONAZOLE [Concomitant]

REACTIONS (14)
  - AGRANULOCYTOSIS [None]
  - ATELECTASIS [None]
  - BONE MARROW FAILURE [None]
  - CANDIDA SEPSIS [None]
  - CYANOSIS [None]
  - FEBRILE NEUTROPENIA [None]
  - GENERAL PHYSICAL HEALTH DETERIORATION [None]
  - HAEMODYNAMIC INSTABILITY [None]
  - HAEMORRHAGIC DIATHESIS [None]
  - METABOLIC ACIDOSIS [None]
  - MUCOSAL HAEMORRHAGE [None]
  - PNEUMONIA [None]
  - RESPIRATORY DISTRESS [None]
  - SEPTIC SHOCK [None]
